FAERS Safety Report 15226279 (Version 1)
Quarter: 2018Q3

REPORT INFORMATION
  Report Type: Spontaneous
  Country: US (occurrence: US)
  Receive Date: 20180706
  Receipt Date: 20180706
  Transmission Date: 20181010
  Serious: Yes (Hospitalization)
  Sender: FDA-Public Use
  Company Number: None

PATIENT
  Age: 67 Year
  Sex: Male
  Weight: 107 kg

DRUGS (2)
  1. DABIGATRAN [Suspect]
     Active Substance: DABIGATRAN
     Indication: ATRIAL FIBRILLATION
     Route: 048
     Dates: start: 20131210, end: 20171124
  2. DABIGATRAN [Suspect]
     Active Substance: DABIGATRAN
     Indication: CEREBROVASCULAR ACCIDENT
     Route: 048
     Dates: start: 20131210, end: 20171124

REACTIONS (4)
  - Treatment failure [None]
  - Carotid artery occlusion [None]
  - Cerebral venous thrombosis [None]
  - Transient ischaemic attack [None]

NARRATIVE: CASE EVENT DATE: 20171124
